FAERS Safety Report 7893364-8 (Version None)
Quarter: 2011Q4

REPORT INFORMATION
  Report Type: 
  Country: None (occurrence: None)
  Receive Date: 20111104
  Receipt Date: 20111101
  Transmission Date: 20120403
  Serious: Yes (Other)
  Sender: FDA-Public Use
  Company Number: CH-ROCHE-1008778

PATIENT
  Age: 63 Year
  Sex: Female

DRUGS (13)
  1. BONIVA [Concomitant]
     Route: 048
  2. MABTHERA [Suspect]
     Indication: RHEUMATOID ARTHRITIS
     Route: 042
     Dates: start: 20040101
  3. PANTOPRAZOLE SODIUM [Concomitant]
     Route: 048
  4. ORLISTAT [Concomitant]
     Route: 048
  5. CLONAZEPAM [Concomitant]
     Route: 048
  6. NEURONTIN [Concomitant]
     Route: 048
  7. VITAMIN D [Concomitant]
     Route: 048
  8. KAPANOL [Concomitant]
     Route: 048
  9. PLAVIX [Concomitant]
  10. ARAVA [Concomitant]
     Route: 048
     Dates: start: 20040101
  11. LORAZEPAM [Concomitant]
     Route: 048
  12. IBRUPROFEN [Concomitant]
     Route: 048
  13. IRBESARTAN AND HYDROCHLOROTHIAZIDE [Concomitant]
     Route: 048

REACTIONS (1)
  - ENCEPHALOPATHY [None]
